FAERS Safety Report 7639589-8 (Version None)
Quarter: 2011Q3

REPORT INFORMATION
  Report Type: 
  Country: None (occurrence: None)
  Receive Date: 20110727
  Receipt Date: 20110713
  Transmission Date: 20111222
  Serious: Yes (Other)
  Sender: FDA-Public Use
  Company Number: IE-SANOFI-AVENTIS-2011SA036698

PATIENT
  Age: 71 Year
  Sex: Female

DRUGS (5)
  1. VENLAFAXINE [Concomitant]
     Indication: DEPRESSION
     Route: 048
  2. LEXOTAN [Suspect]
     Indication: ANXIETY
     Route: 048
  3. SURMONTIL [Interacting]
     Indication: DEPRESSION
     Dosage: FREQUENCY: EVERY NIGHT
     Route: 065
  4. PREDNISOLONE [Concomitant]
     Indication: RHEUMATOID ARTHRITIS
     Route: 048
  5. RIFADIN [Interacting]
     Route: 065
     Dates: start: 20110513, end: 20110531

REACTIONS (3)
  - ANXIETY [None]
  - INSOMNIA [None]
  - DRUG INTERACTION [None]
